FAERS Safety Report 16680125 (Version 1)
Quarter: 2019Q3

REPORT INFORMATION
  Report Type: Spontaneous
  Country: US (occurrence: US)
  Receive Date: 20190807
  Receipt Date: 20190807
  Transmission Date: 20191004
  Serious: Yes (Other)
  Sender: FDA-Public Use
  Company Number: US-BAUSCH-BL-2019-021682

PATIENT
  Sex: Male

DRUGS (1)
  1. DOLLAR GENERAL EYE WASH [PURIFIED WATER] [Suspect]
     Active Substance: WATER
     Indication: VEHICLE SOLUTION USE
     Route: 031
     Dates: start: 201907, end: 201907

REACTIONS (6)
  - Reading disorder [Recovering/Resolving]
  - Product contamination [Unknown]
  - Eye irritation [Recovering/Resolving]
  - Chemical burns of eye [Recovering/Resolving]
  - Eye haemorrhage [Recovering/Resolving]
  - Eye infection [Recovering/Resolving]

NARRATIVE: CASE EVENT DATE: 201907
